FAERS Safety Report 9684096 (Version 1)
Quarter: 2013Q4

REPORT INFORMATION
  Report Type: Spontaneous
  Country: US (occurrence: US)
  Receive Date: 20131112
  Receipt Date: 20131112
  Transmission Date: 20140711
  Serious: Yes (Other)
  Sender: FDA-Public Use
  Company Number: US-PFIZER INC-2013318117

PATIENT
  Age: 62 Year
  Sex: Male
  Weight: 104 kg

DRUGS (4)
  1. VIAGRA [Suspect]
     Indication: ERECTILE DYSFUNCTION
     Dosage: 20 MG, UNK
  2. VIAGRA [Suspect]
     Dosage: UNK
  3. WELLBUTRIN [Concomitant]
     Indication: DEPRESSION
     Dosage: UNK
  4. CLONAZEPAM [Concomitant]
     Indication: DEPRESSION
     Dosage: 2 MG, UNK

REACTIONS (4)
  - Lymphoma [Unknown]
  - Asthenia [Unknown]
  - Weight increased [Unknown]
  - Pain [Unknown]
